FAERS Safety Report 20132414 (Version 2)
Quarter: 2025Q3

REPORT INFORMATION
  Report Type: Spontaneous
  Country: US (occurrence: US)
  Receive Date: 20211130
  Receipt Date: 20250730
  Transmission Date: 20251020
  Serious: Yes (Other)
  Sender: SANOFI AVENTIS
  Company Number: US-SANOFI-00872414

PATIENT
  Sex: Female

DRUGS (2)
  1. APIDRA SOLOSTAR [Suspect]
     Active Substance: INSULIN GLULISINE
     Indication: Type 2 diabetes mellitus
     Dosage: 5 ML, QD
     Route: 065
  2. LANTUS [Suspect]
     Active Substance: INSULIN GLARGINE

REACTIONS (2)
  - Systemic lupus erythematosus [Unknown]
  - Expired product administered [Unknown]
